FAERS Safety Report 7390905-4 (Version None)
Quarter: 2011Q2

REPORT INFORMATION
  Report Type: 
  Country: None (occurrence: None)
  Receive Date: 20110404
  Receipt Date: 20110325
  Transmission Date: 20111010
  Serious: No
  Sender: FDA-Public Use
  Company Number: US-BIOGENIDEC-2011BI011513

PATIENT
  Sex: Male

DRUGS (1)
  1. AVONEX [Suspect]
     Indication: MULTIPLE SCLEROSIS
     Route: 030
     Dates: start: 20050914, end: 20110223

REACTIONS (13)
  - HAEMATOCHEZIA [None]
  - RASH [None]
  - PAIN IN JAW [None]
  - ANGER [None]
  - ABDOMINAL PAIN UPPER [None]
  - HYPOAESTHESIA [None]
  - IRRITABLE BOWEL SYNDROME [None]
  - SUICIDAL IDEATION [None]
  - DEPRESSION [None]
  - FEAR OF DEATH [None]
  - DYSURIA [None]
  - CRYING [None]
  - ORAL DISCOMFORT [None]
